FAERS Safety Report 7976396-0 (Version None)
Quarter: 2011Q4

REPORT INFORMATION
  Report Type: 
  Country: None (occurrence: None)
  Receive Date: 20111213
  Receipt Date: 20111020
  Transmission Date: 20120403
  Serious: No
  Sender: FDA-Public Use
  Company Number: US-AMGEN-USASP2011050996

PATIENT
  Age: 57 Year
  Sex: Male
  Weight: 99.773 kg

DRUGS (14)
  1. LOTRISONE [Concomitant]
     Dosage: AS NEEDED
  2. BACTROBAN                          /00753902/ [Concomitant]
     Dosage: APPLY TWICE A DAY
  3. PROZAC [Concomitant]
     Dosage: 40 MG, QD
  4. TYLENOL (CAPLET) [Concomitant]
     Dosage: 325 MG, UNK
  5. FOLIC ACID [Concomitant]
     Dosage: 1 MG, 1-4 TABS PER DAY
  6. PLAQUENIL [Concomitant]
     Dosage: 200 MG, ONE TABLET TWICE A DAY
  7. VALIUM [Concomitant]
     Dosage: 10 MG, AS NEEDED
  8. ENBREL [Suspect]
     Indication: RHEUMATOID ARTHRITIS
     Dosage: 50 MG, QWK
     Dates: start: 20110802
  9. PRILOSEC                           /00661203/ [Concomitant]
     Dosage: 20 MG, 2 TABS ONCE A DAY
  10. HYTRIN [Concomitant]
     Dosage: 2 MG, QD
  11. METHOTREXATE [Concomitant]
     Dosage: 2.5 MG, 5 TABLETS ONCE A WEEK
  12. DOCUSATE [Concomitant]
     Dosage: 100 MG, BID
  13. LOTENSIN                           /00909102/ [Concomitant]
     Dosage: 10 MG, QD
  14. LORATADINE [Concomitant]
     Dosage: 10 MG, QID

REACTIONS (3)
  - INJECTION SITE HAEMATOMA [None]
  - INJECTION SITE ERYTHEMA [None]
  - INJECTION SITE REACTION [None]
